FAERS Safety Report 10804781 (Version 1)
Quarter: 2015Q1

REPORT INFORMATION
  Report Type: Report from Study
  Country: US (occurrence: US)
  Receive Date: 20150217
  Receipt Date: 20150217
  Transmission Date: 20150721
  Serious: No
  Sender: FDA-Public Use
  Company Number: US-ABBVIE-14K-163-1266243-00

PATIENT
  Age: 57 Year
  Sex: Female

DRUGS (12)
  1. LIPITOR [Concomitant]
     Active Substance: ATORVASTATIN CALCIUM
     Indication: PROPHYLAXIS
  2. GABAPENTIN. [Concomitant]
     Active Substance: GABAPENTIN
     Indication: NERVE COMPRESSION
     Dosage: 1 TABLET IN AM AND PM, 2 TABLETS BEFORE BED
  3. DIOVAN [Concomitant]
     Active Substance: VALSARTAN
     Indication: HYPERTENSION
  4. METOPROLOL [Concomitant]
     Active Substance: METOPROLOL
     Indication: CARDIAC DISORDER
  5. MELTAWAYS [Suspect]
     Active Substance: UNSPECIFIED INGREDIENT
     Indication: SWOLLEN TONGUE
     Dates: start: 2014
  6. HCTZ [Concomitant]
     Active Substance: HYDROCHLOROTHIAZIDE
     Indication: HYPERTENSION
  7. HUMIRA [Suspect]
     Active Substance: ADALIMUMAB
     Indication: CROHN^S DISEASE
     Dates: start: 20140428, end: 20140707
  8. MELTAWAYS [Suspect]
     Active Substance: UNSPECIFIED INGREDIENT
     Indication: LIP SWELLING
  9. BIOTENE [Suspect]
     Active Substance: SODIUM MONOFLUOROPHOSPHATE
     Indication: LIP SWELLING
     Dates: start: 2014
  10. BIOTENE [Suspect]
     Active Substance: SODIUM MONOFLUOROPHOSPHATE
     Indication: SWOLLEN TONGUE
  11. METHOTREXATE [Concomitant]
     Active Substance: METHOTREXATE
     Indication: PRODUCT USED FOR UNKNOWN INDICATION
     Route: 058
  12. LIPITOR [Concomitant]
     Active Substance: ATORVASTATIN CALCIUM
     Indication: BLOOD CHOLESTEROL INCREASED

REACTIONS (14)
  - Cough [Unknown]
  - Crohn^s disease [Recovering/Resolving]
  - Swollen tongue [Not Recovered/Not Resolved]
  - Joint swelling [Not Recovered/Not Resolved]
  - Lethargy [Not Recovered/Not Resolved]
  - Arthritis [Recovering/Resolving]
  - Fatigue [Not Recovered/Not Resolved]
  - Arthralgia [Recovering/Resolving]
  - Vascular injury [Not Recovered/Not Resolved]
  - Paraesthesia [Not Recovered/Not Resolved]
  - Peripheral swelling [Not Recovered/Not Resolved]
  - Drug ineffective [Unknown]
  - Lip swelling [Not Recovered/Not Resolved]
  - Oral pain [Not Recovered/Not Resolved]

NARRATIVE: CASE EVENT DATE: 2014
